FAERS Safety Report 5921952-4 (Version None)
Quarter: 2008Q4

REPORT INFORMATION
  Report Type: 
  Country: None (occurrence: None)
  Receive Date: 20081017
  Receipt Date: 20081010
  Transmission Date: 20090506
  Serious: Yes (Other)
  Sender: FDA-Public Use
  Company Number: US-CELGENEUS-163-C5013-06050766

PATIENT
  Sex: Female
  Weight: 58 kg

DRUGS (5)
  1. REVLIMID [Suspect]
     Route: 048
     Dates: start: 20060406, end: 20060503
  2. PREDNISONE TAB [Suspect]
     Route: 048
     Dates: start: 20060406, end: 20060501
  3. PREDNISONE TAB [Suspect]
     Route: 048
     Dates: start: 20060501, end: 20060601
  4. PREDNISONE TAB [Suspect]
     Route: 048
     Dates: start: 20060601
  5. HYDREA [Concomitant]
     Dosage: UNKNOWN
     Route: 048
     Dates: start: 19870301, end: 20060301

REACTIONS (5)
  - DYSPNOEA [None]
  - OEDEMA PERIPHERAL [None]
  - PERICARDIAL EFFUSION [None]
  - PLEURAL EFFUSION [None]
  - PULMONARY HYPERTENSION [None]
